FAERS Safety Report 4636186-3 (Version None)
Quarter: 2005Q2

REPORT INFORMATION
  Report Type: 
  Country: None (occurrence: None)
  Receive Date: 20050415
  Receipt Date: 20050408
  Transmission Date: 20051028
  Serious: Yes (Hospitalization)
  Sender: FDA-Public Use
  Company Number: PHEH2005US04160

PATIENT
  Sex: 0

DRUGS (1)
  1. TRILEPTAL [Suspect]
     Dates: start: 20040101

REACTIONS (4)
  - ANAEMIA [None]
  - HAEMATOCRIT DECREASED [None]
  - LEUKOPENIA [None]
  - WHITE BLOOD CELL COUNT DECREASED [None]
